FAERS Safety Report 23392446 (Version 3)
Quarter: 2024Q1

REPORT INFORMATION
  Report Type: Spontaneous
  Country: GB (occurrence: GB)
  Receive Date: 20240111
  Receipt Date: 20240213
  Transmission Date: 20240409
  Serious: Yes (Hospitalization, Other)
  Sender: FDA-Public Use
  Company Number: None

PATIENT
  Age: 35 Year
  Sex: Female
  Weight: 90 kg

DRUGS (1)
  1. FRAGMIN [Suspect]
     Active Substance: DALTEPARIN SODIUM
     Indication: Postpartum haemorrhage
     Dosage: 1 DF, DAILY (ONE INJECTION DAILY AT NIGHT)
     Dates: start: 20231220, end: 20231223

REACTIONS (3)
  - Injection site vesicles [Recovering/Resolving]
  - Skin exfoliation [Recovering/Resolving]
  - Off label use [Unknown]

NARRATIVE: CASE EVENT DATE: 20231220
